FAERS Safety Report 8858175 (Version 1)
Quarter: 2012Q4

REPORT INFORMATION
  Report Type: 
  Country: US (occurrence: US)
  Receive Date: 20121024
  Receipt Date: 20121024
  Transmission Date: 20130627
  Serious: No
  Sender: FDA-Public Use
  Company Number: US-AMGEN-USASP2011066641

PATIENT
  Sex: Female
  Weight: 61.22 kg

DRUGS (7)
  1. ENBREL [Suspect]
     Indication: PRODUCT USED FOR UNKNOWN INDICATION
     Dosage: 50 mg, 2 times/wk
  2. BONIVA [Concomitant]
     Dosage: 150 mg, UNK
  3. CENTRUM SILVER                     /01292501/ [Concomitant]
  4. NAPROXEN [Concomitant]
     Dosage: 250 mg, UNK
  5. FISH OIL [Concomitant]
  6. CALCIUM D                          /00944201/ [Concomitant]
  7. LORATADINE D [Concomitant]

REACTIONS (1)
  - Chest X-ray abnormal [Unknown]
